FAERS Safety Report 5289369-6 (Version None)
Quarter: 2007Q2

REPORT INFORMATION
  Report Type: 
  Country: None (occurrence: None)
  Receive Date: 20070404
  Receipt Date: 20070404
  Transmission Date: 20071010
  Serious: Yes (Other)
  Sender: FDA-Public Use
  Company Number: None

PATIENT
  Age: 78 Year
  Sex: Female
  Weight: 70.7611 kg

DRUGS (8)
  1. MIDAZOLAM HCL [Suspect]
     Indication: COLONOSCOPY
     Dosage: 3MG X1 IV
     Route: 042
     Dates: start: 20070306
  2. MEPERIDINE HCL [Suspect]
     Indication: COLONOSCOPY
     Dosage: 75 MG X1 IV
     Route: 042
  3. FLEETS PHOSPHOSODA [Concomitant]
  4. NORMADYNE [Concomitant]
  5. LOROL [Concomitant]
  6. COZAAR [Concomitant]
  7. ALLEGRA [Concomitant]
  8. FOSAMAX [Concomitant]

REACTIONS (1)
  - UNRESPONSIVE TO STIMULI [None]
